FAERS Safety Report 7050337-5 (Version None)
Quarter: 2010Q4

REPORT INFORMATION
  Report Type: 
  Country: None (occurrence: None)
  Receive Date: 20101018
  Receipt Date: 20101011
  Transmission Date: 20110411
  Serious: Yes (Disabling, Other)
  Sender: FDA-Public Use
  Company Number: US-BAYER-201020338NA

PATIENT
  Age: 85 Year
  Sex: Female
  Weight: 59 kg

DRUGS (20)
  1. AVELOX [Suspect]
     Indication: INFECTION
     Route: 048
     Dates: start: 20100208, end: 20100218
  2. PREDNISONE [Concomitant]
     Indication: PRODUCT USED FOR UNKNOWN INDICATION
  3. COUMADIN [Concomitant]
     Indication: PRODUCT USED FOR UNKNOWN INDICATION
  4. LORAZEPAM [Concomitant]
     Indication: ANXIETY
  5. CITALOPRAM HYDROBROMIDE [Concomitant]
     Indication: DEPRESSION
  6. SINGULAIR [Concomitant]
  7. VITAMIN D [Concomitant]
  8. DIOVAN [Concomitant]
  9. ZOCOR [Concomitant]
  10. CARTINA [Concomitant]
  11. DIGOXIN [Concomitant]
  12. LASIX [Concomitant]
  13. PRILOSEC [Concomitant]
  14. NOVOLOG MIX 70/30 [Concomitant]
     Dosage: 70/30
  15. NOVOFINE NEEDLES [Concomitant]
  16. BUDESONIDE [Concomitant]
     Route: 055
  17. PERFORMIST [Concomitant]
     Route: 055
  18. ATROVENT [Concomitant]
     Route: 055
  19. OXYCODONE HCL [Concomitant]
  20. HYDROCODONE [Concomitant]

REACTIONS (14)
  - ABASIA [None]
  - ARTHRALGIA [None]
  - CRYING [None]
  - DUPUYTREN'S CONTRACTURE [None]
  - DYSTONIA [None]
  - ERYTHEMA [None]
  - JOINT SWELLING [None]
  - MOTOR DYSFUNCTION [None]
  - MUSCULOSKELETAL STIFFNESS [None]
  - PAIN IN EXTREMITY [None]
  - TENDON DISORDER [None]
  - TENDON PAIN [None]
  - TRIGGER FINGER [None]
  - WEIGHT BEARING DIFFICULTY [None]
